FAERS Safety Report 11525363 (Version 2)
Quarter: 2015Q4

REPORT INFORMATION
  Report Type: Spontaneous
  Country: DE (occurrence: DE)
  Receive Date: 20150918
  Receipt Date: 20151222
  Transmission Date: 20160304
  Serious: Yes (Hospitalization)
  Sender: FDA-Public Use
  Company Number: DE-TEVA-593428GER

PATIENT
  Age: 63 Year
  Sex: Female

DRUGS (3)
  1. VOLTAREN RESINAT 75MG KAPSELN [Concomitant]
     Route: 048
  2. PREDNISOLON [Concomitant]
     Active Substance: PREDNISOLONE
     Dosage: 5 MILLIGRAM DAILY;
  3. RAMIPRIL COMP. ABZ 5 MG/12,5 MG TABLETTEN [Suspect]
     Active Substance: HYDROCHLOROTHIAZIDE\RAMIPRIL
     Indication: HYPERTENSION
     Route: 048
     Dates: start: 201410, end: 20150908

REACTIONS (10)
  - Diarrhoea [Unknown]
  - Micturition urgency [Recovered/Resolved]
  - Ocular hyperaemia [Unknown]
  - Dysuria [Unknown]
  - Acute sinusitis [Unknown]
  - Cough [Recovered/Resolved]
  - Vaginal inflammation [Unknown]
  - Urinary hesitation [Recovered/Resolved]
  - Trismus [Recovered/Resolved]
  - Genital erythema [Unknown]

NARRATIVE: CASE EVENT DATE: 2015
